FAERS Safety Report 7807884-5 (Version None)
Quarter: 2011Q4

REPORT INFORMATION
  Report Type: 
  Country: None (occurrence: None)
  Receive Date: 20111011
  Receipt Date: 20110930
  Transmission Date: 20120403
  Serious: Yes (Other)
  Sender: FDA-Public Use
  Company Number: US-CUBIST-2011S1000646

PATIENT
  Sex: Female

DRUGS (6)
  1. PRAVACHOL [Concomitant]
     Indication: PRODUCT USED FOR UNKNOWN INDICATION
     Route: 065
  2. CUBICIN [Suspect]
     Indication: CELLULITIS
  3. CUBICIN [Suspect]
     Indication: STAPHYLOCOCCAL INFECTION
  4. CUBICIN [Suspect]
  5. PLAVIX [Concomitant]
     Indication: PRODUCT USED FOR UNKNOWN INDICATION
  6. CUBICIN [Suspect]

REACTIONS (3)
  - DRUG INEFFECTIVE [None]
  - INFECTION [None]
  - NEUROPATHY PERIPHERAL [None]
